FAERS Safety Report 10556082 (Version 1)
Quarter: 2014Q4

REPORT INFORMATION
  Report Type: Report from Study
  Country: US (occurrence: US)
  Receive Date: 20141030
  Receipt Date: 20141030
  Transmission Date: 20150529
  Serious: Yes (Other)
  Sender: FDA-Public Use
  Company Number: US-SA-2014SA144992

PATIENT
  Sex: Female

DRUGS (1)
  1. AUBAGIO [Suspect]
     Active Substance: TERIFLUNOMIDE
     Indication: MULTIPLE SCLEROSIS
     Route: 048
     Dates: start: 20140802

REACTIONS (6)
  - Platelet count decreased [Unknown]
  - White blood cell count decreased [Unknown]
  - Asthma [Unknown]
  - Dyspnoea [Unknown]
  - Flushing [Unknown]
  - Chest discomfort [Unknown]
